FAERS Safety Report 7763357-X (Version None)
Quarter: 2011Q3

REPORT INFORMATION
  Report Type: 
  Country: None (occurrence: None)
  Receive Date: 20110920
  Receipt Date: 20110915
  Transmission Date: 20111222
  Serious: Yes (Hospitalization)
  Sender: FDA-Public Use
  Company Number: US-ABBOTT-11P-163-0855284-00

PATIENT
  Sex: Female
  Weight: 62.652 kg

DRUGS (8)
  1. NIASPAN [Suspect]
  2. NIASPAN [Suspect]
     Indication: BLOOD CHOLESTEROL
  3. CORDARONE [Suspect]
     Indication: PRODUCT USED FOR UNKNOWN INDICATION
     Dates: end: 20100101
  4. NIASPAN [Suspect]
     Dates: start: 20090101, end: 20100101
  5. COREG [Concomitant]
     Indication: BLOOD PRESSURE
  6. ANTIHISTAMINES [Concomitant]
     Indication: HYPERSENSITIVITY
     Dosage: ONCE DAILY AS NEEDED
  7. DIGOXIN [Concomitant]
     Indication: PRODUCT USED FOR UNKNOWN INDICATION
  8. LIPITOR [Concomitant]
     Indication: BLOOD CHOLESTEROL

REACTIONS (6)
  - VOMITING [None]
  - NAUSEA [None]
  - FLUSHING [None]
  - DIARRHOEA [None]
  - RASH MACULAR [None]
  - HEPATIC ENZYME INCREASED [None]
